FAERS Safety Report 8211977-0 (Version None)
Quarter: 2012Q1

REPORT INFORMATION
  Report Type: 
  Country: None (occurrence: None)
  Receive Date: 20120228
  Receipt Date: 20111027
  Transmission Date: 20120608
  Serious: Yes (Death)
  Sender: FDA-Public Use
  Company Number: RB-33708-2011

PATIENT
  Sex: Male
  Weight: 86.637 kg

DRUGS (2)
  1. GABAPENTIN [Suspect]
     Indication: PRODUCT USED FOR UNKNOWN INDICATION
  2. BUPRENORPHINE [Suspect]
     Indication: PRODUCT USED FOR UNKNOWN INDICATION

REACTIONS (6)
  - TOXICITY TO VARIOUS AGENTS [None]
  - EXCORIATION [None]
  - BRAIN CONTUSION [None]
  - SUBDURAL HAEMORRHAGE [None]
  - HAEMORRHAGE [None]
  - HEAD INJURY [None]
